FAERS Safety Report 12671948 (Version 1)
Quarter: 2016Q3

REPORT INFORMATION
  Report Type: Spontaneous
  Country: GB (occurrence: GB)
  Receive Date: 20160822
  Receipt Date: 20160822
  Transmission Date: 20161109
  Serious: Yes (Hospitalization)
  Sender: FDA-Public Use
  Company Number: GB-TEVA-684719ACC

PATIENT
  Age: 81 Year
  Sex: Female

DRUGS (15)
  1. QUININE [Concomitant]
     Active Substance: QUININE
  2. TICAGRELOR [Concomitant]
     Active Substance: TICAGRELOR
  3. BISOPROLOL [Concomitant]
     Active Substance: BISOPROLOL
  4. LANSOPRAZOLE. [Concomitant]
     Active Substance: LANSOPRAZOLE
  5. ASPIRIN. [Concomitant]
     Active Substance: ASPIRIN
  6. HYOSCINE BUTYLBROMIDE [Concomitant]
     Active Substance: BUTYLSCOPOLAMINE
  7. RAMIPRIL. [Concomitant]
     Active Substance: RAMIPRIL
     Dosage: 10 MILLIGRAM DAILY; 10 MG DAILY, RECENTLY SWITCHED TO LISINOPRIL
  8. ADCAL-D3 [Concomitant]
     Active Substance: CALCIUM CARBONATE\CHOLECALCIFEROL
  9. EPLERENONE. [Concomitant]
     Active Substance: EPLERENONE
  10. LISINOPRIL. [Concomitant]
     Active Substance: LISINOPRIL
  11. BUMETANIDE. [Suspect]
     Active Substance: BUMETANIDE
     Dosage: 1 MILLIGRAM DAILY; MORNING, 1 MG DAILY
     Route: 048
     Dates: start: 20160721
  12. ALENDRONIC ACID [Concomitant]
     Active Substance: ALENDRONIC ACID
  13. ATORVASTATIN [Concomitant]
     Active Substance: ATORVASTATIN
  14. CANDESARTAN [Concomitant]
     Active Substance: CANDESARTAN
  15. GTN [Concomitant]
     Active Substance: NITROGLYCERIN

REACTIONS (2)
  - Urine output decreased [Recovering/Resolving]
  - Oedema peripheral [Recovering/Resolving]

NARRATIVE: CASE EVENT DATE: 20160727
